FAERS Safety Report 23222696 (Version 1)
Quarter: 2023Q4

REPORT INFORMATION
  Report Type: Spontaneous
  Country: FR (occurrence: FR)
  Receive Date: 20231123
  Receipt Date: 20231123
  Transmission Date: 20240110
  Serious: Yes (Other)
  Sender: FDA-Public Use
  Company Number: FR-JNJFOC-20230952876

PATIENT
  Sex: Female

DRUGS (3)
  1. ERDAFITINIB [Suspect]
     Active Substance: ERDAFITINIB
     Indication: Product used for unknown indication
     Route: 065
  2. ERDAFITINIB [Suspect]
     Active Substance: ERDAFITINIB
     Route: 065
  3. ERDAFITINIB [Suspect]
     Active Substance: ERDAFITINIB
     Route: 065

REACTIONS (2)
  - Ocular toxicity [Unknown]
  - Gastrointestinal toxicity [Unknown]
